FAERS Safety Report 20419060 (Version 3)
Quarter: 2022Q2

REPORT INFORMATION
  Report Type: Report from Study
  Country: US (occurrence: US)
  Receive Date: 20220203
  Receipt Date: 20220419
  Transmission Date: 20220720
  Serious: Yes (Other)
  Sender: FDA-Public Use
  Company Number: US-BIOVITRUM-2021US0638

PATIENT
  Sex: Female

DRUGS (1)
  1. KINERET [Suspect]
     Active Substance: ANAKINRA
     Indication: Product used for unknown indication
     Route: 058

REACTIONS (16)
  - Rectal haemorrhage [Unknown]
  - Diverticulitis [Unknown]
  - Abdominal discomfort [Unknown]
  - Malaise [Unknown]
  - Illness [Unknown]
  - Sinusitis [Unknown]
  - Blood glucose increased [Unknown]
  - Rash erythematous [Unknown]
  - Loss of personal independence in daily activities [Unknown]
  - Memory impairment [Unknown]
  - Rash pruritic [Unknown]
  - Injection site erythema [Unknown]
  - Injection site pruritus [Unknown]
  - Product dose omission issue [Unknown]
  - Product storage error [Unknown]
  - Product dose omission in error [Unknown]
